FAERS Safety Report 9314328 (Version 1)
Quarter: 2013Q2

REPORT INFORMATION
  Report Type: Spontaneous
  Country: US (occurrence: None)
  Receive Date: 20130524
  Receipt Date: 20130524
  Transmission Date: 20140414
  Serious: Yes (Death)
  Sender: FDA-Public Use
  Company Number: None

PATIENT
  Age: 46 Year
  Sex: Male
  Weight: 80.29 kg

DRUGS (1)
  1. METHADONE HCL 10 MG [Suspect]
     Indication: PAIN
     Dosage: 40 MG TWICE DAILY PO
     Route: 048
     Dates: start: 20121014, end: 20130217

REACTIONS (1)
  - Respiratory arrest [None]
